FAERS Safety Report 10724560 (Version 4)
Quarter: 2015Q1

REPORT INFORMATION
  Report Type: Report from Study
  Country: FR (occurrence: FR)
  Receive Date: 20150120
  Receipt Date: 20150316
  Transmission Date: 20150721
  Serious: Yes (Death, Life-Threatening, Hospitalization)
  Sender: FDA-Public Use
  Company Number: FR-009507513-1501FRA006418

PATIENT
  Age: 78 Year
  Sex: Male
  Weight: 67 kg

DRUGS (6)
  1. DELURSAN [Concomitant]
     Active Substance: URSODIOL
     Indication: CHOLANGITIS
     Dosage: 0.5 G, BID
     Route: 048
     Dates: start: 2000
  2. LODOZ [Concomitant]
     Active Substance: BISOPROLOL FUMARATE\HYDROCHLOROTHIAZIDE
     Indication: HYPERTENSION
     Dosage: 10/6.25 MG, QD
     Route: 048
     Dates: start: 2000
  3. CORTANCYL [Suspect]
     Active Substance: PREDNISONE
     Indication: SPINAL CORD INFECTION
     Dosage: 70 MG, QD
     Route: 048
     Dates: start: 20141104
  4. PEMBROLIZUMAB. [Suspect]
     Active Substance: PEMBROLIZUMAB
     Dosage: TOTAL DAILY DOSE 134 MG, Q3W
     Route: 042
     Dates: start: 20150105
  5. PEMBROLIZUMAB. [Suspect]
     Active Substance: PEMBROLIZUMAB
     Indication: MALIGNANT MELANOMA
     Dosage: TOTAL DAILY DOSE 134 MG, Q3W
     Route: 042
     Dates: start: 20141205, end: 20141205
  6. PENTASA [Concomitant]
     Active Substance: MESALAMINE
     Indication: PROCTITIS
     Dosage: 2 G, QD
     Route: 048
     Dates: start: 2000

REACTIONS (6)
  - Lung disorder [Not Recovered/Not Resolved]
  - Lung disorder [Unknown]
  - Death [Fatal]
  - Thrombocytopenia [Not Recovered/Not Resolved]
  - Hepatocellular injury [Unknown]
  - Blood bilirubin abnormal [Unknown]

NARRATIVE: CASE EVENT DATE: 20141230
